FAERS Safety Report 9905639 (Version 1)
Quarter: 2014Q1

REPORT INFORMATION
  Report Type: Spontaneous
  Country: US (occurrence: US)
  Receive Date: 20140218
  Receipt Date: 20140218
  Transmission Date: 20141002
  Serious: No
  Sender: FDA-Public Use
  Company Number: US-GILEAD-2012-0050290

PATIENT
  Age: 44 Year
  Sex: Female

DRUGS (2)
  1. LETAIRIS [Suspect]
     Indication: PRODUCT USED FOR UNKNOWN INDICATION
     Dosage: 5 MG, UNK
     Route: 048
     Dates: start: 20120110
  2. VENTAVIS [Concomitant]

REACTIONS (4)
  - Dizziness [Unknown]
  - Ear congestion [Unknown]
  - Nasal congestion [Unknown]
  - Throat irritation [Unknown]
